FAERS Safety Report 20005321 (Version 1)
Quarter: 2021Q4

REPORT INFORMATION
  Report Type: Spontaneous
  Country: US (occurrence: US)
  Receive Date: 20211028
  Receipt Date: 20211028
  Transmission Date: 20220304
  Serious: Yes (Other)
  Sender: FDA-Public Use
  Company Number: None

PATIENT
  Age: 9 Year
  Sex: Female
  Weight: 82.8 kg

DRUGS (1)
  1. SINGULAIR [Suspect]
     Active Substance: MONTELUKAST SODIUM
     Indication: Multiple allergies
     Dosage: ?          QUANTITY:1 TABLET(S);
     Route: 048

REACTIONS (2)
  - Adverse drug reaction [None]
  - Hallucination, visual [None]

NARRATIVE: CASE EVENT DATE: 20180401
